FAERS Safety Report 16719872 (Version 3)
Quarter: 2020Q3

REPORT INFORMATION
  Report Type: Spontaneous
  Country: US (occurrence: US)
  Receive Date: 20190820
  Receipt Date: 20200728
  Transmission Date: 20201102
  Serious: No
  Sender: FDA-Public Use
  Company Number: US-PFIZER INC-2018222974

PATIENT
  Age: 58 Year
  Sex: Male

DRUGS (10)
  1. LYRICA [Suspect]
     Active Substance: PREGABALIN
     Indication: BACK PAIN
     Dosage: 300 MG, 2X/DAY (EVERY 12 HOURS)
     Route: 048
  2. LYRICA [Suspect]
     Active Substance: PREGABALIN
     Indication: SCIATICA
  3. LYRICA [Suspect]
     Active Substance: PREGABALIN
     Indication: ARTHRALGIA
  4. LYRICA [Suspect]
     Active Substance: PREGABALIN
     Indication: HERPES ZOSTER
  5. LYRICA [Suspect]
     Active Substance: PREGABALIN
     Indication: ESSENTIAL HYPERTENSION
  6. LYRICA [Suspect]
     Active Substance: PREGABALIN
     Indication: ARTHRALGIA
  7. LYRICA [Suspect]
     Active Substance: PREGABALIN
     Indication: ADJUSTMENT DISORDER
  8. LYRICA [Suspect]
     Active Substance: PREGABALIN
     Indication: RASH
  9. LYRICA [Suspect]
     Active Substance: PREGABALIN
     Indication: COUGH
  10. LYRICA [Suspect]
     Active Substance: PREGABALIN
     Indication: PAIN

REACTIONS (3)
  - Off label use [Unknown]
  - Pain [Unknown]
  - Product prescribing error [Unknown]
